FAERS Safety Report 9395058 (Version 2)
Quarter: 2013Q3

REPORT INFORMATION
  Report Type: Report from Study
  Country: JP (occurrence: JP)
  Receive Date: 20130711
  Receipt Date: 20130724
  Transmission Date: 20140515
  Serious: Yes (Other)
  Sender: FDA-Public Use
  Company Number: JP-ROCHE-1245951

PATIENT
  Age: 46 Year
  Sex: Female
  Weight: 45 kg

DRUGS (10)
  1. OMALIZUMAB [Suspect]
     Indication: ASTHMA
     Route: 058
     Dates: start: 20130502
  2. OMALIZUMAB [Suspect]
     Route: 058
     Dates: start: 20130530, end: 20130530
  3. SYMBICORT [Concomitant]
     Route: 065
     Dates: start: 20130128
  4. THEODUR [Concomitant]
     Route: 065
     Dates: start: 20130128
  5. PREDONINE [Concomitant]
     Route: 065
     Dates: start: 20130128
  6. MEPTIN AIR [Concomitant]
     Route: 065
     Dates: start: 20130128
  7. ASVERIN [Concomitant]
     Route: 065
     Dates: start: 20130122
  8. MUCODYNE [Concomitant]
     Route: 065
     Dates: start: 20130122
  9. BAKTAR [Concomitant]
     Route: 065
     Dates: start: 20110122
  10. SINGULAIR [Concomitant]
     Route: 065
     Dates: start: 20130128

REACTIONS (2)
  - Rash [Recovered/Resolved]
  - Wheezing [Recovered/Resolved]
